FAERS Safety Report 12170494 (Version 1)
Quarter: 2016Q1

REPORT INFORMATION
  Report Type: Spontaneous
  Country: GB (occurrence: GB)
  Receive Date: 20160311
  Receipt Date: 20160311
  Transmission Date: 20160526
  Serious: Yes (Other)
  Sender: FDA-Public Use
  Company Number: GB-ALKEM-001521

PATIENT

DRUGS (1)
  1. OLANZAPINE. [Suspect]
     Active Substance: OLANZAPINE
     Indication: PRODUCT USED FOR UNKNOWN INDICATION
     Dosage: OVER PERIOD OF TIME, PATIENT TRIED TO LOWER DOSE OF OLANZAPINE FROM 10MG DOWN TO 7.5MG...

REACTIONS (3)
  - Therapy cessation [Unknown]
  - Overdose [Unknown]
  - Suicide attempt [Unknown]
